FAERS Safety Report 6517331-1 (Version None)
Quarter: 2009Q4

REPORT INFORMATION
  Report Type: 
  Country: None (occurrence: None)
  Receive Date: 20091218
  Receipt Date: 20091207
  Transmission Date: 20100525
  Serious: Yes (Other)
  Sender: FDA-Public Use
  Company Number: TRP_06130_2009

PATIENT

DRUGS (3)
  1. RIBASPHERE [Suspect]
     Indication: HEPATITIS C
     Dosage: (1200 MG, DAILY(
     Dates: start: 20090130
  2. PEGASYS [Suspect]
     Indication: HEPATITIS C
     Dosage: (180 ?G 1X/WEEK)
     Dates: start: 20090130
  3. INSULIN [Concomitant]

REACTIONS (17)
  - APPLICATION SITE ERYTHEMA [None]
  - BLOOD GLUCOSE INCREASED [None]
  - CANDIDIASIS [None]
  - DERMATITIS CONTACT [None]
  - DRUG ADMINISTRATION ERROR [None]
  - DYSGEUSIA [None]
  - FOOD POISONING [None]
  - INCORRECT DOSE ADMINISTERED [None]
  - INCORRECT STORAGE OF DRUG [None]
  - INITIAL INSOMNIA [None]
  - INSOMNIA [None]
  - PNEUMONIA [None]
  - PRURITUS [None]
  - SINUSITIS [None]
  - THIRST [None]
  - TINNITUS [None]
  - VOMITING [None]
